FAERS Safety Report 25121178 (Version 2)
Quarter: 2025Q2

REPORT INFORMATION
  Report Type: Spontaneous
  Country: CA (occurrence: CA)
  Receive Date: 20250326
  Receipt Date: 20250505
  Transmission Date: 20250717
  Serious: Yes (Hospitalization)
  Sender: CSL BEHRING
  Company Number: CA-Vifor (International) Inc.-VIT-2024-10313

PATIENT
  Age: 33 Year
  Sex: Male
  Weight: 83 kg

DRUGS (9)
  1. VELPHORO [Suspect]
     Active Substance: SUCROFERRIC OXYHYDROXIDE
     Indication: Hyperphosphataemia
     Dosage: 1 DF, QD WITH EVERY MEAL
     Route: 048
     Dates: start: 2020
  2. FERINJECT [Suspect]
     Active Substance: FERRIC CARBOXYMALTOSE
     Indication: Product used for unknown indication
     Dosage: 900 MG AT SUPPER
     Route: 042
     Dates: start: 2022
  3. VENOFER [Suspect]
     Active Substance: IRON SUCROSE
     Indication: Product used for unknown indication
     Dosage: 900 MG AT SUPPER
     Route: 042
     Dates: start: 2022
  4. BISOPROLOL [Concomitant]
     Active Substance: BISOPROLOL
     Route: 065
  5. LEVODOPA [Concomitant]
     Active Substance: LEVODOPA
  6. IRBESARTAN [Concomitant]
     Active Substance: IRBESARTAN
     Route: 065
  7. LEVOTHYROXINE SODIUM [Concomitant]
     Active Substance: LEVOTHYROXINE SODIUM
     Indication: Pain
     Route: 065
  8. CALCITRIOL [Concomitant]
     Active Substance: CALCITRIOL
     Indication: Pain
  9. VITAMINS [Concomitant]
     Active Substance: VITAMINS

REACTIONS (5)
  - Renal disorder [Recovering/Resolving]
  - Blood calcium abnormal [Recovering/Resolving]
  - Blood potassium decreased [Recovering/Resolving]
  - Parathyroidectomy [Recovering/Resolving]
  - Overdose [Unknown]

NARRATIVE: CASE EVENT DATE: 20220101
